FAERS Safety Report 15494405 (Version 6)
Quarter: 2019Q1

REPORT INFORMATION
  Report Type: Spontaneous
  Country: US (occurrence: US)
  Receive Date: 20181012
  Receipt Date: 20190319
  Transmission Date: 20190417
  Serious: No
  Sender: FDA-Public Use
  Company Number: US-SA-2018SA283028

PATIENT
  Age: 60 Year
  Sex: Female

DRUGS (1)
  1. AUBAGIO [Suspect]
     Active Substance: TERIFLUNOMIDE
     Indication: MULTIPLE SCLEROSIS
     Dosage: 7 MG, QD
     Route: 048
     Dates: start: 20180905

REACTIONS (4)
  - Diarrhoea [Unknown]
  - Blood pressure increased [Unknown]
  - Alopecia [Unknown]
  - Flatulence [Unknown]

NARRATIVE: CASE EVENT DATE: 2018
